FAERS Safety Report 11643551 (Version 1)
Quarter: 2015Q4

REPORT INFORMATION
  Report Type: Spontaneous
  Country: US (occurrence: None)
  Receive Date: 20151019
  Receipt Date: 20151019
  Transmission Date: 20160304
  Serious: No
  Sender: FDA-Public Use
  Company Number: None

PATIENT
  Age: 21 Year
  Sex: Female
  Weight: 61.24 kg

DRUGS (2)
  1. ESSENTIAL OILS. [Concomitant]
     Active Substance: ESSENTIAL OILS
  2. ESCITALOPRAM 5MG WALMART [Suspect]
     Active Substance: ESCITALOPRAM OXALATE
     Indication: DEPRESSION
     Dosage: 1 PILL ONCE DAILY
     Route: 048
     Dates: start: 20151015, end: 20151016

REACTIONS (7)
  - Somnolence [None]
  - Nausea [None]
  - Palpitations [None]
  - Anxiety [None]
  - Feeling abnormal [None]
  - Tremor [None]
  - Crying [None]

NARRATIVE: CASE EVENT DATE: 20151016
